FAERS Safety Report 23741611 (Version 1)
Quarter: 2024Q2

REPORT INFORMATION
  Report Type: Spontaneous
  Country: US (occurrence: US)
  Receive Date: 20240415
  Receipt Date: 20240415
  Transmission Date: 20240717
  Serious: Yes (Other)
  Sender: FDA-Public Use
  Company Number: US-BRISTOL-MYERS SQUIBB COMPANY-2024-056684

PATIENT
  Age: 79 Year
  Sex: Female

DRUGS (1)
  1. REVLIMID [Suspect]
     Active Substance: LENALIDOMIDE
     Indication: Bone cancer
     Dosage: TAKE 1 CAPSULE BY MOUTH WITH FULL GLASS OF WATER, W/ OR W/O FOOD AT THE SAME TIME EVERY DAY FOR 21 D
     Route: 048

REACTIONS (2)
  - Erythema [Not Recovered/Not Resolved]
  - Off label use [Unknown]
